FAERS Safety Report 6287449-X (Version None)
Quarter: 2009Q3

REPORT INFORMATION
  Report Type: 
  Country: None (occurrence: None)
  Receive Date: 20090727
  Receipt Date: 20090716
  Transmission Date: 20100115
  Serious: Yes (Hospitalization)
  Sender: FDA-Public Use
  Company Number: 2009AL004772

PATIENT
  Age: 89 Year
  Sex: Female

DRUGS (7)
  1. NAPROXEN [Suspect]
  2. WARFARIN SODIUM [Concomitant]
  3. DIURAL [Concomitant]
  4. LYRICA [Concomitant]
  5. IMOVANE [Concomitant]
  6. RENITEC [Concomitant]
  7. CARVEDILOL [Concomitant]

REACTIONS (2)
  - DRUG INTERACTION [None]
  - INTERNATIONAL NORMALISED RATIO INCREASED [None]
